FAERS Safety Report 7732909-5 (Version None)
Quarter: 2011Q3

REPORT INFORMATION
  Report Type: 
  Country: None (occurrence: None)
  Receive Date: 20110907
  Receipt Date: 20110826
  Transmission Date: 20111222
  Serious: Yes (Hospitalization, Other)
  Sender: FDA-Public Use
  Company Number: PHFR2011GB04302

PATIENT
  Sex: Female

DRUGS (3)
  1. CLOZAPINE [Suspect]
     Dosage: 650 MG
     Dates: start: 20110716
  2. CLOZAPINE [Suspect]
     Indication: SCHIZOPHRENIA
     Route: 048
     Dates: start: 19960531
  3. CLOZAPINE [Suspect]
     Dosage: 300 MG/DAY
     Route: 048

REACTIONS (3)
  - FLUID INTAKE REDUCED [None]
  - HYPOPHAGIA [None]
  - ANTIPSYCHOTIC DRUG LEVEL INCREASED [None]
